FAERS Safety Report 5663384-2 (Version None)
Quarter: 2008Q1

REPORT INFORMATION
  Report Type: 
  Country: None (occurrence: None)
  Receive Date: 20080310
  Receipt Date: 20080222
  Transmission Date: 20080703
  Serious: Yes (Death)
  Sender: FDA-Public Use
  Company Number: L08-USA-00315-80

PATIENT
  Sex: Female

DRUGS (2)
  1. CALCIUM ANTAGONIST DILTIAZEM (DILTIAZEM) [Suspect]
  2. CARDIAC GLYCOSIDE [Suspect]

REACTIONS (3)
  - CARDIAC ARREST [None]
  - MULTIPLE DRUG OVERDOSE [None]
  - RESPIRATORY ARREST [None]
